FAERS Safety Report 5500113-7 (Version None)
Quarter: 2007Q4

REPORT INFORMATION
  Report Type: 
  Country: None (occurrence: None)
  Receive Date: 20071024
  Receipt Date: 20071010
  Transmission Date: 20080405
  Serious: Yes (Other)
  Sender: FDA-Public Use
  Company Number: SPV1-2007-04620

PATIENT
  Age: 73 Year
  Sex: Male

DRUGS (2)
  1. PENTASA [Suspect]
     Dosage: 500 MG, ORAL
     Route: 048
  2. WARFARIN SODIUM [Suspect]

REACTIONS (2)
  - DRUG INTERACTION [None]
  - INTERNATIONAL NORMALISED RATIO INCREASED [None]
